FAERS Safety Report 8479618-5 (Version None)
Quarter: 2012Q2

REPORT INFORMATION
  Report Type: 
  Country: None (occurrence: None)
  Receive Date: 20120629
  Receipt Date: 20120626
  Transmission Date: 20120825
  Serious: No
  Sender: FDA-Public Use
  Company Number: US-PFIZER INC-2012154577

PATIENT
  Sex: Female

DRUGS (3)
  1. FISH OIL [Concomitant]
     Dosage: UNK
  2. MEDROL [Suspect]
     Dosage: UNK
     Dates: start: 20120601
  3. VITAMIN D [Concomitant]
     Dosage: UNK

REACTIONS (1)
  - MIDDLE INSOMNIA [None]
